FAERS Safety Report 19301483 (Version 1)
Quarter: 2021Q2

REPORT INFORMATION
  Report Type: Spontaneous
  Country: US (occurrence: US)
  Receive Date: 20210525
  Receipt Date: 20210525
  Transmission Date: 20210717
  Serious: No
  Sender: FDA-Public Use
  Company Number: US-BAYER-2021-146662

PATIENT
  Age: 89 Year
  Sex: Male

DRUGS (1)
  1. ALEVE [Suspect]
     Active Substance: NAPROXEN SODIUM
     Indication: PROPHYLAXIS
     Dosage: 2 TABLETS IN THE FIRST HOUR, THEN IN THE NIGHT, TOOK 2 MORE TABLETS
     Route: 048
     Dates: start: 20210523

REACTIONS (1)
  - Extra dose administered [Unknown]

NARRATIVE: CASE EVENT DATE: 20210523
